FAERS Safety Report 14229420 (Version 2)
Quarter: 2017Q4

REPORT INFORMATION
  Report Type: Report from Study
  Country: US (occurrence: US)
  Receive Date: 20171128
  Receipt Date: 20171215
  Transmission Date: 20180321
  Serious: Yes (Hospitalization, Other)
  Sender: FDA-Public Use
  Company Number: US-ROCHE-2027188

PATIENT
  Age: 51 Year
  Sex: Female
  Weight: 95 kg

DRUGS (7)
  1. TRASTUZUMAB. [Suspect]
     Active Substance: TRASTUZUMAB
     Dosage: WEEK 2 TO 12. (MAINTANANCE DOSE) (AS PER PROTOCOL)
     Route: 058
  2. PACLITAXEL. [Suspect]
     Active Substance: PACLITAXEL
     Indication: BREAST CANCER
     Route: 065
     Dates: start: 20141030, end: 20150116
  3. CYTOXAN [Suspect]
     Active Substance: CYCLOPHOSPHAMIDE
     Indication: BREAST CANCER
     Route: 042
     Dates: start: 20150130, end: 20150312
  4. TRASTUZUMAB. [Suspect]
     Active Substance: TRASTUZUMAB
     Indication: BREAST CANCER
     Dosage: WEEK 1, (LOADING DOSE) (AS PER PROTOCOL)
     Route: 058
     Dates: start: 20141030, end: 20150116
  5. ADRIAMYCIN [Suspect]
     Active Substance: DOXORUBICIN HYDROCHLORIDE
     Indication: BREAST CANCER
     Route: 042
     Dates: start: 20150130, end: 20150312
  6. PERTUZUMAB. [Suspect]
     Active Substance: PERTUZUMAB
     Indication: BREAST CANCER
     Dosage: WEEK 1, LOADING DOSE (AS PER PROTOCOL)
     Route: 042
     Dates: start: 20141030, end: 20150116
  7. PERTUZUMAB. [Suspect]
     Active Substance: PERTUZUMAB
     Dosage: WEEK 4, 7 AND 10; (MAINTANANCE DOSE) (AS PER PROTOCOL)
     Route: 042

REACTIONS (1)
  - Breast cellulitis [Recovered/Resolved]

NARRATIVE: CASE EVENT DATE: 20150501
